FAERS Safety Report 18750898 (Version 1)
Quarter: 2021Q1

REPORT INFORMATION
  Report Type: Spontaneous
  Country: FR (occurrence: FR)
  Receive Date: 20210118
  Receipt Date: 20210118
  Transmission Date: 20210419
  Serious: Yes (Other)
  Sender: FDA-Public Use
  Company Number: FR-UCBSA-2021000624

PATIENT
  Age: 88 Year
  Sex: Female
  Weight: 50 kg

DRUGS (2)
  1. KEPPRA [Suspect]
     Active Substance: LEVETIRACETAM
     Dosage: 500 MILLIGRAM, 2X/DAY (BID)
     Route: 048
     Dates: start: 20201201, end: 20201215
  2. KEPPRA [Suspect]
     Active Substance: LEVETIRACETAM
     Indication: TONIC CLONIC MOVEMENTS
     Dosage: 250 MILLIGRAM, 2X/DAY (BID)
     Route: 048
     Dates: start: 20201117, end: 20201121

REACTIONS (3)
  - Mixed liver injury [Recovered/Resolved]
  - Product use issue [Unknown]
  - Somnolence [Recovering/Resolving]

NARRATIVE: CASE EVENT DATE: 20201117
